FAERS Safety Report 6203738-9 (Version None)
Quarter: 2009Q2

REPORT INFORMATION
  Report Type: 
  Country: None (occurrence: None)
  Receive Date: 20090526
  Receipt Date: 20090526
  Transmission Date: 20091009
  Serious: Yes (Other)
  Sender: FDA-Public Use
  Company Number: None

PATIENT
  Sex: Female
  Weight: 58.9676 kg

DRUGS (2)
  1. BUPROPION HYDROCHLORIDE [Suspect]
     Indication: DEPRESSION
     Dosage: 150MG TWICE PER DAY
     Dates: start: 20081229, end: 20090504
  2. DIAZEPAM [Suspect]
     Indication: DEPRESSION
     Dosage: 5MG TWICE PER DAY
     Dates: start: 20081229, end: 20090413

REACTIONS (13)
  - ABNORMAL BEHAVIOUR [None]
  - ACNE [None]
  - CONDITION AGGRAVATED [None]
  - CONFUSIONAL STATE [None]
  - DELUSION [None]
  - EUPHORIC MOOD [None]
  - IMPULSIVE BEHAVIOUR [None]
  - MARITAL PROBLEM [None]
  - MENSTRUAL DISORDER [None]
  - MUSCLE SPASMS [None]
  - PARTNER STRESS [None]
  - PSYCHOTIC DISORDER [None]
  - WEIGHT DECREASED [None]
